FAERS Safety Report 9714324 (Version 1)
Quarter: 2013Q4

REPORT INFORMATION
  Report Type: Spontaneous
  Country: US (occurrence: US)
  Receive Date: 20131126
  Receipt Date: 20131126
  Transmission Date: 20140711
  Serious: Yes (Other)
  Sender: FDA-Public Use
  Company Number: US-JNJFOC-20131111779

PATIENT
  Age: 77 Year
  Sex: Female
  Weight: 68.04 kg

DRUGS (18)
  1. INVOKANA [Suspect]
     Indication: TYPE 2 DIABETES MELLITUS
     Route: 048
     Dates: start: 201310, end: 20131119
  2. POLYVINYL ALCOHOL [Concomitant]
     Indication: DRY EYE
     Route: 047
  3. WARFARIN [Concomitant]
     Route: 048
  4. PLAVIX [Concomitant]
     Route: 048
  5. TUMS [Concomitant]
     Indication: GASTROOESOPHAGEAL REFLUX DISEASE
     Route: 048
  6. LEVOTHYROXINE [Concomitant]
     Indication: HYPOTHYROIDISM
     Route: 048
  7. XANAX [Concomitant]
     Route: 048
  8. NITROSTAT [Concomitant]
     Indication: BACK PAIN
     Route: 048
  9. NASONEX [Concomitant]
     Route: 045
  10. LEVEMIR [Concomitant]
     Indication: TYPE 2 DIABETES MELLITUS
  11. METOPROLOL [Concomitant]
     Indication: HYPERTENSION
     Route: 048
  12. GEMFIBROZIL [Concomitant]
     Route: 048
  13. ZETIA [Concomitant]
     Indication: BLOOD CHOLESTEROL INCREASED
     Route: 048
  14. RAMIPRIL [Concomitant]
     Route: 048
  15. HYDROCHLOROTHIAZIDE [Concomitant]
     Route: 048
  16. DILTIAZEM [Concomitant]
     Route: 048
  17. SOTALOL [Concomitant]
     Route: 048
  18. CLARINEX [Concomitant]
     Indication: SINUS DISORDER
     Route: 048

REACTIONS (6)
  - Haemorrhage [Not Recovered/Not Resolved]
  - Blood urine present [Unknown]
  - Skin disorder [Unknown]
  - Dysuria [Recovering/Resolving]
  - Urinary tract infection [Unknown]
  - Fatigue [Unknown]
